FAERS Safety Report 10204577 (Version 3)
Quarter: 2014Q3

REPORT INFORMATION
  Report Type: Spontaneous
  Country: FR (occurrence: FR)
  Receive Date: 20140529
  Receipt Date: 20140731
  Transmission Date: 20150326
  Serious: Yes (Hospitalization)
  Sender: FDA-Public Use
  Company Number: PHHY2014FR063886

PATIENT
  Age: 42 Year
  Sex: Female
  Weight: 75 kg

DRUGS (3)
  1. TYSABRI [Suspect]
     Active Substance: NATALIZUMAB
     Indication: RELAPSING-REMITTING MULTIPLE SCLEROSIS
     Route: 042
  2. GILENYA [Suspect]
     Active Substance: FINGOLIMOD HYDROCHLORIDE
     Indication: RELAPSING-REMITTING MULTIPLE SCLEROSIS
     Dosage: 1 DF, QD
     Route: 048
     Dates: start: 20140101, end: 20140301
  3. KEPPRA [Suspect]
     Active Substance: LEVETIRACETAM

REACTIONS (11)
  - Central nervous system lesion [Unknown]
  - Depression [Unknown]
  - Aphasia [Not Recovered/Not Resolved]
  - Generalised tonic-clonic seizure [Recovered/Resolved]
  - Disorientation [Recovered/Resolved]
  - Vision blurred [Recovered/Resolved]
  - Progressive multifocal leukoencephalopathy [Unknown]
  - Affective disorder [Unknown]
  - Apathy [Not Recovered/Not Resolved]
  - Abnormal behaviour [Not Recovered/Not Resolved]
  - Eye pain [Recovered/Resolved]

NARRATIVE: CASE EVENT DATE: 201402
